FAERS Safety Report 8222920-2 (Version None)
Quarter: 2012Q1

REPORT INFORMATION
  Report Type: 
  Country: None (occurrence: None)
  Receive Date: 20120320
  Receipt Date: 20111004
  Transmission Date: 20120608
  Serious: Yes (Congenital Anomaly, Other)
  Sender: FDA-Public Use
  Company Number: JP-ASTRAZENECA-2011SE42654

PATIENT
  Age: 0 Year
  Sex: Male
  Weight: 2 kg

DRUGS (4)
  1. TACROLIMUS [Concomitant]
  2. CANDESARTAN CILEXETIL [Suspect]
     Route: 064
  3. ESTRADIOL [Concomitant]
     Route: 064
  4. MEDROXYPROGESTERONE ACETATE [Concomitant]
     Route: 064

REACTIONS (2)
  - SKULL MALFORMATION [None]
  - RESPIRATORY DISTRESS [None]
